FAERS Safety Report 11216122 (Version 1)
Quarter: 2015Q2

REPORT INFORMATION
  Report Type: Spontaneous
  Country: US (occurrence: None)
  Receive Date: 20150623
  Receipt Date: 20150623
  Transmission Date: 20150821
  Serious: No
  Sender: FDA-Public Use
  Company Number: None

PATIENT
  Age: 36 Year
  Sex: Female

DRUGS (1)
  1. DULOXETINE [Suspect]
     Active Substance: DULOXETINE
     Indication: MAJOR DEPRESSION
     Route: 048
     Dates: start: 20150601

REACTIONS (3)
  - Product substitution issue [None]
  - Headache [None]
  - Abdominal discomfort [None]

NARRATIVE: CASE EVENT DATE: 20150601
